FAERS Safety Report 14301603 (Version 1)
Quarter: 2017Q4

REPORT INFORMATION
  Report Type: Spontaneous
  Country: US (occurrence: US)
  Receive Date: 20171218
  Receipt Date: 20171218
  Transmission Date: 20180321
  Serious: Yes (Hospitalization)
  Sender: FDA-Public Use
  Company Number: None

PATIENT
  Age: 76 Year
  Sex: Female
  Weight: 59 kg

DRUGS (6)
  1. TICAGRELOR. [Suspect]
     Active Substance: TICAGRELOR
     Indication: CORONARY ARTERY DISEASE
     Route: 048
     Dates: start: 20170803, end: 20171108
  2. TICAGRELOR. [Suspect]
     Active Substance: TICAGRELOR
     Indication: CORONARY ARTERIAL STENT INSERTION
     Route: 048
     Dates: start: 20170803, end: 20171108
  3. METFORMIN [Concomitant]
     Active Substance: METFORMIN HYDROCHLORIDE
  4. BLINDED ASPIRIN (STUDY DRUG) [Concomitant]
  5. TICAGRELOR. [Suspect]
     Active Substance: TICAGRELOR
     Indication: POSTOPERATIVE CARE
     Route: 048
     Dates: start: 20170803, end: 20171108
  6. STATIN [Concomitant]
     Active Substance: UNSPECIFIED INGREDIENT

REACTIONS (5)
  - Aspartate aminotransferase increased [None]
  - Gamma-glutamyltransferase increased [None]
  - Alanine aminotransferase increased [None]
  - Hepatotoxicity [None]
  - Drug interaction [None]

NARRATIVE: CASE EVENT DATE: 20171108
